FAERS Safety Report 10004468 (Version 1)
Quarter: 2014Q1

REPORT INFORMATION
  Report Type: Spontaneous
  Country: US (occurrence: US)
  Receive Date: 20140312
  Receipt Date: 20140312
  Transmission Date: 20141002
  Serious: No
  Sender: FDA-Public Use
  Company Number: US-INCYTE CORPORATION-2013IN003020

PATIENT
  Sex: Female

DRUGS (1)
  1. JAKAFI [Suspect]
     Indication: FAMILIAL POLYCYTHAEMIA
     Dosage: 20 MG IN AM, 15 MG IN PM
     Route: 048
     Dates: start: 201206

REACTIONS (1)
  - Ear pain [Unknown]
